FAERS Safety Report 7860693-3 (Version None)
Quarter: 2011Q4

REPORT INFORMATION
  Report Type: 
  Country: None (occurrence: None)
  Receive Date: 20111027
  Receipt Date: 20111019
  Transmission Date: 20120403
  Serious: Yes (Other)
  Sender: FDA-Public Use
  Company Number: GB-BAYER-2011-102708

PATIENT
  Sex: Female

DRUGS (2)
  1. ANTIBIOTICS [Suspect]
     Indication: VAGINAL INFECTION
  2. INTERFERON BETA-1B [Suspect]
     Indication: MULTIPLE SCLEROSIS
     Dosage: 250 ?G, QOD
     Route: 058
     Dates: start: 20110901

REACTIONS (6)
  - BACK PAIN [None]
  - PAIN IN EXTREMITY [None]
  - INFLUENZA LIKE ILLNESS [None]
  - MULTIPLE SCLEROSIS RELAPSE [None]
  - INJECTION SITE REACTION [None]
  - VAGINAL INFECTION [None]
